FAERS Safety Report 11820305 (Version 1)
Quarter: 2015Q4

REPORT INFORMATION
  Report Type: Spontaneous
  Country: IT (occurrence: IT)
  Receive Date: 20151210
  Receipt Date: 20151210
  Transmission Date: 20160305
  Serious: Yes (Life-Threatening)
  Sender: FDA-Public Use
  Company Number: IT-TEVA-614664ACC

PATIENT
  Age: 76 Year
  Sex: Female

DRUGS (3)
  1. RIBAVIRIN. [Suspect]
     Active Substance: RIBAVIRIN
     Indication: HEPATITIS C
     Dosage: 400 MG DAILY
     Route: 048
     Dates: start: 20151017, end: 20151030
  2. VIEKIRAX - ABBVIE LTD [Suspect]
     Active Substance: OMBITASVIR\PARITAPREVIR\RITONAVIR
     Indication: HEPATITIS C
     Dosage: 2 DF DAILY
     Route: 048
     Dates: start: 20151017, end: 20151102
  3. EXVIERA - ABBVIE LTD [Suspect]
     Active Substance: DASABUVIR
     Indication: HEPATITIS C
     Dosage: 2 DF DAILY
     Route: 048
     Dates: start: 20151017, end: 20151102

REACTIONS (2)
  - Dyspepsia [Recovering/Resolving]
  - Jaundice [Recovering/Resolving]

NARRATIVE: CASE EVENT DATE: 20151029
